FAERS Safety Report 5885177-3 (Version None)
Quarter: 2008Q3

REPORT INFORMATION
  Report Type: 
  Country: None (occurrence: None)
  Receive Date: 20080916
  Receipt Date: 20080902
  Transmission Date: 20090109
  Serious: Yes (Hospitalization)
  Sender: FDA-Public Use
  Company Number: PHHO1996CA04347

PATIENT
  Sex: Male

DRUGS (17)
  1. NEORAL [Suspect]
     Route: 048
     Dates: start: 19960210
  2. MYCOSTATIN [Concomitant]
     Dosage: UNSPECIFIED
     Route: 048
  3. ACYCLOVIR [Concomitant]
     Dosage: UNSPECIFIED
     Route: 048
  4. DIABETA [Concomitant]
     Dosage: UNSPECIFIED
     Route: 058
  5. LORAZEPAM [Concomitant]
     Dosage: UNSPECIFIED
     Route: 048
  6. AMPHOGEL [Concomitant]
     Dosage: UNSPECIFIED
     Route: 048
  7. TYLENOL (CAPLET) [Concomitant]
     Dosage: UNSPECIFIED
     Route: 048
  8. COUMADIN [Concomitant]
     Dosage: UNSPECIFIED
     Route: 030
     Dates: end: 19960315
  9. COUMADIN [Concomitant]
     Dosage: UNSPECIFIED
     Route: 048
     Dates: start: 19960319
  10. PREDNISONE TAB [Suspect]
     Route: 048
     Dates: end: 19960327
  11. PREDNISONE TAB [Suspect]
     Route: 048
     Dates: start: 19960328
  12. LASIX [Concomitant]
     Dosage: UNSPECIFIED
     Route: 042
     Dates: start: 19960314, end: 19960314
  13. LASIX [Concomitant]
     Dosage: UNSPECIFIED
     Route: 048
     Dates: end: 19960327
  14. LASIX [Concomitant]
     Dosage: UNSPECIFIED
     Route: 048
     Dates: start: 19960328, end: 19960410
  15. LASIX [Concomitant]
     Dosage: UNSPECIFIED
     Route: 048
     Dates: start: 19960411
  16. MEVACOR [Concomitant]
     Dosage: UNSPECIFIED
     Route: 048
  17. IMURAN [Suspect]
     Route: 048
     Dates: start: 19960328

REACTIONS (2)
  - BRONCHOSPASM [None]
  - PNEUMONIA VIRAL [None]
